FAERS Safety Report 9099951 (Version 6)
Quarter: 2013Q2

REPORT INFORMATION
  Report Type: Spontaneous
  Country: US (occurrence: US)
  Receive Date: 20130211
  Receipt Date: 20130528
  Transmission Date: 20140414
  Serious: Yes (Hospitalization, Other)
  Sender: FDA-Public Use
  Company Number: US-009507513-1111USA03911

PATIENT
  Sex: Female
  Weight: 88.89 kg

DRUGS (5)
  1. FOSAMAX [Suspect]
     Indication: OSTEOPOROSIS
     Dosage: 70 MG, QW
     Route: 048
     Dates: start: 200611, end: 200803
  2. ALENDRONATE SODIUM [Suspect]
     Indication: OSTEOPOROSIS
     Dosage: 70 MG, QW
     Route: 048
     Dates: start: 200803, end: 200901
  3. MULTIVITAMIN WITH VITAMIN D AND CALCIUM [Concomitant]
     Indication: PRODUCT USED FOR UNKNOWN INDICATION
     Dosage: UNK, QD
     Route: 048
     Dates: start: 1990
  4. DIMETHYL SULFONE (+) GLUCOSAMINE [Concomitant]
     Indication: PRODUCT USED FOR UNKNOWN INDICATION
     Dosage: UNK, QD
     Route: 048
     Dates: start: 2009
  5. PRILOSEC [Concomitant]
     Indication: PRODUCT USED FOR UNKNOWN INDICATION
     Dosage: 20 MG, QD
     Route: 048
     Dates: start: 200602

REACTIONS (23)
  - Femoral neck fracture [Unknown]
  - Intramedullary rod insertion [Unknown]
  - Liver disorder [Unknown]
  - Liver disorder [Unknown]
  - Alcohol abuse [Unknown]
  - Gastrointestinal haemorrhage [Unknown]
  - Pubis fracture [Unknown]
  - Anaemia [Recovering/Resolving]
  - Transfusion [Unknown]
  - Hepatitis C [Unknown]
  - Sleep disorder [Unknown]
  - Cellulitis [Recovered/Resolved]
  - Weight increased [Unknown]
  - Intervertebral disc space narrowing [Unknown]
  - Osteosclerosis [Unknown]
  - Exostosis [Unknown]
  - Spinal osteoarthritis [Unknown]
  - Joint crepitation [Unknown]
  - Pain in extremity [Unknown]
  - Erosive oesophagitis [Unknown]
  - Abdominal distension [Unknown]
  - Pain in extremity [Unknown]
  - Arthralgia [Unknown]
